FAERS Safety Report 4762088-8 (Version None)
Quarter: 2005Q3

REPORT INFORMATION
  Report Type: 
  Country: None (occurrence: None)
  Receive Date: 20050831
  Receipt Date: 20050621
  Transmission Date: 20060218
  Serious: No
  Sender: FDA-Public Use
  Company Number: PHEH2005US07071

PATIENT
  Age: 73 Year
  Sex: Female

DRUGS (2)
  1. ENABLEX [Suspect]
     Indication: HYPERTONIC BLADDER
     Dosage: 15 MG, QD; 7.5 MG, QD
  2. NORVASC [Concomitant]

REACTIONS (3)
  - DRUG ERUPTION [None]
  - OEDEMA PERIPHERAL [None]
  - RASH [None]
